FAERS Safety Report 7583594-7 (Version None)
Quarter: 2011Q2

REPORT INFORMATION
  Report Type: 
  Country: None (occurrence: None)
  Receive Date: 20110630
  Receipt Date: 20110621
  Transmission Date: 20111010
  Serious: Yes (Hospitalization)
  Sender: FDA-Public Use
  Company Number: A0924799A

PATIENT
  Age: 38 Year
  Sex: Female
  Weight: 95.5 kg

DRUGS (9)
  1. ADVAIR DISKUS 100/50 [Suspect]
     Indication: ASTHMA
     Dosage: 1PUFF TWICE PER DAY
     Route: 055
  2. ALBUTEROL SULFATE AUTOHALER [Concomitant]
  3. MONTELUKAST SODIUM [Concomitant]
  4. ALBUTEROL SULFATE AUTOHALER [Concomitant]
  5. BECLOMETHASONE [Concomitant]
  6. LISINOPRIL [Concomitant]
  7. SEREVENT [Suspect]
     Indication: ASTHMA
     Dosage: 1PUFF TWICE PER DAY
     Route: 055
  8. SEREVENT [Suspect]
     Dosage: 1PUFF TWICE PER DAY
     Route: 055
  9. BLOOD PRESSURE MEDICATION [Concomitant]

REACTIONS (3)
  - RESPIRATORY FAILURE [None]
  - STATUS ASTHMATICUS [None]
  - RESPIRATORY ARREST [None]
